FAERS Safety Report 7867336-3 (Version None)
Quarter: 2011Q4

REPORT INFORMATION
  Report Type: 
  Country: None (occurrence: None)
  Receive Date: 20111028
  Receipt Date: 20111024
  Transmission Date: 20120403
  Serious: Yes (Death, Hospitalization, Other)
  Sender: FDA-Public Use
  Company Number: CO-PFIZER INC-2011259408

PATIENT
  Age: 68 Year
  Sex: Male

DRUGS (1)
  1. LIPITOR [Suspect]
     Indication: BLOOD CHOLESTEROL INCREASED
     Dosage: 20 MG, UNK
     Route: 048
     Dates: start: 20061026

REACTIONS (5)
  - MYOCARDITIS [None]
  - BACTERIAL INFECTION [None]
  - DEATH [None]
  - CARDIAC PACEMAKER REPLACEMENT [None]
  - PNEUMONIA [None]
